FAERS Safety Report 8162804-1 (Version None)
Quarter: 2012Q1

REPORT INFORMATION
  Report Type: 
  Country: None (occurrence: None)
  Receive Date: 20120103
  Receipt Date: 20111004
  Transmission Date: 20120608
  Serious: No
  Sender: FDA-Public Use
  Company Number: AE-2011-001488

PATIENT
  Age: 56 Year
  Sex: Male
  Weight: 83.0083 kg

DRUGS (4)
  1. DEPO TESTOSTERONE (TESTOSTERONE) [Concomitant]
  2. PEGASYS [Concomitant]
  3. RIBAVIRIN [Concomitant]
  4. INCIVEK [Suspect]
     Dosage: 2250 MG (750 MG, 3 IN 1 D)
     Dates: start: 20110817

REACTIONS (3)
  - PAIN [None]
  - BACK PAIN [None]
  - INFLUENZA LIKE ILLNESS [None]
